FAERS Safety Report 18194781 (Version 1)
Quarter: 2020Q3

REPORT INFORMATION
  Report Type: Spontaneous
  Country: US (occurrence: US)
  Receive Date: 20200826
  Receipt Date: 20200826
  Transmission Date: 20201103
  Serious: No
  Sender: FDA-Public Use
  Company Number: US-009507513-2008USA010361

PATIENT

DRUGS (1)
  1. REMERON [Suspect]
     Active Substance: MIRTAZAPINE
     Indication: INCREASED APPETITE
     Dosage: 15 MILLIGRAM, TWICE DAILY
     Route: 048

REACTIONS (3)
  - Product use issue [Unknown]
  - No adverse event [Unknown]
  - Product prescribing issue [Unknown]
